FAERS Safety Report 15260882 (Version 1)
Quarter: 2018Q3

REPORT INFORMATION
  Report Type: Spontaneous
  Country: US (occurrence: US)
  Receive Date: 20180809
  Receipt Date: 20180809
  Transmission Date: 20181010
  Serious: Yes (Other)
  Sender: FDA-Public Use
  Company Number: US-PFIZER INC-2018316627

PATIENT
  Age: 33 Year
  Sex: Male

DRUGS (1)
  1. BENZATHINE BENZYLPENICILLIN [Suspect]
     Active Substance: PENICILLIN G BENZATHINE
     Indication: ANTIBIOTIC PROPHYLAXIS
     Dosage: UNK
     Route: 030

REACTIONS (14)
  - Headache [Recovered/Resolved]
  - Affective disorder [Recovered/Resolved]
  - Disturbance in social behaviour [Recovered/Resolved]
  - Dysgeusia [Recovered/Resolved]
  - Schizophrenia [Not Recovered/Not Resolved]
  - Fear [Recovered/Resolved]
  - Hallucination [Recovered/Resolved]
  - Delusion [Recovered/Resolved]
  - Hypersensitivity [Recovered/Resolved]
  - Anxiety disorder [Recovered/Resolved]
  - Paranoia [Not Recovered/Not Resolved]
  - Panic disorder [Recovered/Resolved]
  - Pain in extremity [Recovered/Resolved]
  - Impulsive behaviour [Recovered/Resolved]
